FAERS Safety Report 6686509-9 (Version None)
Quarter: 2010Q2

REPORT INFORMATION
  Report Type: 
  Country: None (occurrence: None)
  Receive Date: 20100416
  Receipt Date: 20100316
  Transmission Date: 20101027
  Serious: Yes (Hospitalization, Other)
  Sender: FDA-Public Use
  Company Number: IMP_04947_2010

PATIENT
  Sex: Female
  Weight: 105.2345 kg

DRUGS (17)
  1. DIVALPROEX SODIUM [Suspect]
     Indication: BIPOLAR DISORDER
     Dosage: (2500 DF)
     Dates: start: 20090201, end: 20090301
  2. DIVALPROEX SODIUM [Suspect]
     Indication: BIPOLAR DISORDER
     Dosage: (2500 DF)
     Dates: start: 20090301, end: 20090505
  3. DIVALPROEX SODIUM [Suspect]
     Indication: BIPOLAR DISORDER
     Dosage: (2500 DF)
     Dates: start: 20090616, end: 20091218
  4. DIVALPROEX SODIUM [Suspect]
     Indication: BIPOLAR DISORDER
     Dosage: (2500 DF)
     Dates: start: 20091223
  5. DEPAKOTE ER [Suspect]
     Indication: BIPOLAR DISORDER
     Dates: start: 20030101, end: 20090221
  6. DEPAKOTE ER [Suspect]
     Indication: BIPOLAR DISORDER
     Dates: start: 20090301, end: 20090301
  7. DEPAKOTE ER [Suspect]
     Indication: BIPOLAR DISORDER
     Dates: start: 20090505, end: 20090616
  8. HALOPERIDOL [Concomitant]
  9. CLONAZEPAM [Concomitant]
  10. CHLORMEZANONE [Concomitant]
  11. DIPHENHYDRAMINE HYDROCHLORIDE [Concomitant]
  12. LABETALOL HCL [Concomitant]
  13. SIMVASTATIN [Concomitant]
  14. LOSARTAN POTASSIUM [Concomitant]
  15. FOLIC ACID [Concomitant]
  16. ERGOCALCIFEROL [Concomitant]
  17. ACETAMINOPHEN [Concomitant]

REACTIONS (17)
  - ALOPECIA [None]
  - BALANCE DISORDER [None]
  - CLOSTRIDIAL INFECTION [None]
  - COLITIS [None]
  - CYSTITIS [None]
  - DIARRHOEA [None]
  - DRUG TOXICITY [None]
  - ILEUS PARALYTIC [None]
  - IRRITABILITY [None]
  - MANIA [None]
  - MEDICATION RESIDUE [None]
  - MIGRAINE WITH AURA [None]
  - PARKINSONISM [None]
  - TREMOR [None]
  - TYPE 1 DIABETES MELLITUS [None]
  - URINARY RETENTION [None]
  - WEIGHT INCREASED [None]
